FAERS Safety Report 6640699-2 (Version None)
Quarter: 2010Q1

REPORT INFORMATION
  Report Type: 
  Country: None (occurrence: None)
  Receive Date: 20100318
  Receipt Date: 20100305
  Transmission Date: 20100710
  Serious: Yes (Hospitalization, Other)
  Sender: FDA-Public Use
  Company Number: US-ELI_LILLY_AND_COMPANY-US200910004064

PATIENT
  Sex: Male
  Weight: 113.38 kg

DRUGS (23)
  1. BYETTA [Suspect]
     Indication: TYPE 2 DIABETES MELLITUS
     Dosage: 5 UG, 2/D
     Route: 058
     Dates: start: 20060608, end: 20060711
  2. BYETTA [Suspect]
     Dosage: 10 UG, 2/D
     Route: 058
     Dates: start: 20060711, end: 20090801
  3. NEXIUM [Concomitant]
     Dosage: 20 MG, UNK
  4. METFORMIN HYDROCHLORIDE [Concomitant]
     Dosage: 1000 MG, 2/D
  5. AVANDIA [Concomitant]
     Dosage: 4 MG, DAILY (1/D)
  6. TRICOR [Concomitant]
     Dosage: 160 MG, DAILY (1/D)
  7. ZOCOR [Concomitant]
     Dosage: 80 MG, DAILY (1/D)
  8. ZETIA [Concomitant]
     Dosage: 10 MG, UNK
  9. LASIX [Concomitant]
     Dosage: 40 MG, DAILY (1/D)
  10. METOLAZONE [Concomitant]
     Dosage: 5 MG, DAILY (1/D)
  11. METOPROLOL TARTRATE [Concomitant]
     Dosage: 100 MG, DAILY (1/D)
  12. EFFEXOR [Concomitant]
  13. HUMALOG MIX                             /SPA/ [Concomitant]
  14. HUMULIN /PRI/ [Concomitant]
  15. IMDUR [Concomitant]
  16. VALSARTAN [Concomitant]
     Dosage: 80 MG, DAILY (1/D)
  17. WARFARIN SODIUM [Concomitant]
  18. AMIODARONE HCL [Concomitant]
     Dosage: 200 MG, DAILY (1/D)
  19. PAROXETINE HCL [Concomitant]
     Dosage: 20 MG, DAILY (1/D)
  20. NIACIN [Concomitant]
     Dosage: 500 MG, UNK
  21. DIOVAN [Concomitant]
  22. FISH OIL [Concomitant]
  23. NICOTINE [Concomitant]
     Route: 062

REACTIONS (3)
  - OFF LABEL USE [None]
  - PANCREATITIS ACUTE [None]
  - RENAL DISORDER [None]
